FAERS Safety Report 7605108-5 (Version None)
Quarter: 2011Q3

REPORT INFORMATION
  Report Type: 
  Country: None (occurrence: None)
  Receive Date: 20110713
  Receipt Date: 20100110
  Transmission Date: 20111222
  Serious: Yes (Death, Other)
  Sender: FDA-Public Use
  Company Number: US-BAYER-201010620NA

PATIENT
  Age: 68 Year
  Sex: Female
  Weight: 93 kg

DRUGS (34)
  1. LANTUS [Concomitant]
  2. PROPOFOL [Concomitant]
     Dosage: UNK
     Route: 042
     Dates: start: 20050930
  3. INSULIN [Concomitant]
     Dosage: UNK
     Route: 042
     Dates: start: 20050930
  4. HYDROCHLOROTHIAZIDE [Concomitant]
     Route: 048
  5. HEPARIN [Concomitant]
     Dosage: UNK
     Route: 042
     Dates: start: 20050930
  6. MILRINONE [Concomitant]
     Dosage: UNK
     Route: 042
     Dates: start: 20050930
  7. NORVASC [Concomitant]
     Route: 048
  8. VASOTEC [Concomitant]
     Route: 048
  9. FORANE [Concomitant]
     Dosage: UNK, INHALED
     Route: 055
     Dates: start: 20050930
  10. EPINEPHRINE [Concomitant]
     Dosage: UNK
     Route: 042
     Dates: start: 20050930
  11. PAVULON [Concomitant]
     Dosage: UNK
     Route: 042
     Dates: start: 20050930
  12. PAVULON [Concomitant]
     Dosage: UNK, PUMP PERFUSIONIST
     Dates: start: 20050930
  13. SUFENTA PRESERVATIVE FREE [Concomitant]
     Dosage: UNK
     Route: 042
     Dates: start: 20050930
  14. TRASYLOL [Suspect]
     Indication: PRODUCT USED FOR UNKNOWN INDICATION
     Dosage: 200 ML, UNK
     Route: 042
     Dates: start: 20050930, end: 20050930
  15. PHENYLEPHRINE HCL [Concomitant]
     Dosage: UNK, PUMP PERFUSIONIST
     Dates: start: 20050930
  16. TRASYLOL [Suspect]
     Indication: CORONARY ARTERY BYPASS
     Dosage: UNK
     Route: 042
     Dates: start: 20060810, end: 20060810
  17. LASIX [Concomitant]
     Dosage: UNK
     Route: 048
  18. AVALIDE [Concomitant]
     Route: 048
  19. PROTAMINE SULFATE [Concomitant]
     Dosage: 200 MG, UNK
     Route: 042
     Dates: start: 20050930
  20. PLATELETS [Concomitant]
     Dosage: UNK
     Route: 042
     Dates: start: 20050930, end: 20050930
  21. TRASYLOL [Suspect]
     Indication: TRICUSPID VALVE REPAIR
  22. NEURONTIN [Concomitant]
     Route: 048
  23. CARDEM [Concomitant]
     Route: 048
  24. HEPARIN [Concomitant]
     Dosage: UNK, PUMP PERFUSIONIST
     Dates: start: 20050930
  25. ANCEF [Concomitant]
     Dosage: UNK
     Route: 042
     Dates: start: 20050930
  26. MANNITOL [Concomitant]
     Dosage: UNK, PUMP PERFUSIONIST
     Dates: start: 20050930
  27. RED BLOOD CELLS [Concomitant]
     Dosage: 1000 ML, UNK
     Route: 042
     Dates: start: 20050930, end: 20050930
  28. LIPITOR [Concomitant]
     Dosage: UNK
     Route: 048
  29. INSULIN [Concomitant]
     Dosage: UNK, PUMP PERFUSIONIST
     Dates: start: 20050930
  30. SUFENTA PRESERVATIVE FREE [Concomitant]
     Dosage: UNK, PUMP PERFUSIONIST
     Dates: start: 20050930
  31. TRASYLOL [Suspect]
     Indication: MITRAL VALVE REPLACEMENT
     Dosage: DOSAGE IS UNREADABLE (LOADING DOSE)
     Route: 042
     Dates: start: 20050930, end: 20050930
  32. TENORMIN [Concomitant]
     Route: 048
  33. PROPOFOL [Concomitant]
     Dosage: UNK, PUMP PERFUSIONIST
     Dates: start: 20050930
  34. FRESH FROZEN PLASMA [Concomitant]
     Dosage: 2 U, UNK
     Route: 042
     Dates: start: 20050930, end: 20050930

REACTIONS (11)
  - CEREBROVASCULAR ACCIDENT [None]
  - UNEVALUABLE EVENT [None]
  - INJURY [None]
  - ANHEDONIA [None]
  - DEATH [None]
  - PAIN [None]
  - MYOCARDIAL INFARCTION [None]
  - FEAR [None]
  - DEPRESSION [None]
  - RENAL FAILURE [None]
  - ANXIETY [None]
